FAERS Safety Report 8780758 (Version 1)
Quarter: 2012Q4

REPORT INFORMATION
  Report Type: 
  Country: US (occurrence: US)
  Receive Date: 20120913
  Receipt Date: 20120913
  Transmission Date: 20130627
  Serious: No
  Sender: FDA-Public Use
  Company Number: US-VERTEX PHARMACEUTICAL INC.-AE-2012-008282

PATIENT

DRUGS (5)
  1. INCIVEK [Suspect]
     Indication: HEPATITIS C
     Route: 048
     Dates: start: 20120306, end: 20120526
  2. COPEGUS [Concomitant]
     Indication: HEPATITIS C
     Route: 048
     Dates: start: 20120501
  3. PEGASYS [Concomitant]
     Indication: HEPATITIS C
     Route: 058
     Dates: start: 20120501
  4. SYNTHROID [Concomitant]
     Indication: HYPOTHYROIDISM
  5. MVI [Concomitant]
     Indication: MEDICAL DIET

REACTIONS (5)
  - Arthralgia [Not Recovered/Not Resolved]
  - Eye swelling [Unknown]
  - Swelling face [Unknown]
  - Rash generalised [Not Recovered/Not Resolved]
  - Haemoglobin decreased [Not Recovered/Not Resolved]
